FAERS Safety Report 7065597-4 (Version None)
Quarter: 2010Q4

REPORT INFORMATION
  Report Type: 
  Country: None (occurrence: None)
  Receive Date: 20101022
  Receipt Date: 20101022
  Transmission Date: 20110411
  Serious: No
  Sender: FDA-Public Use
  Company Number: None

PATIENT
  Sex: Female

DRUGS (2)
  1. LANSOPRAZOLE [Suspect]
     Indication: ACQUIRED OESOPHAGEAL WEB
     Dosage: 30 MG 1 CAP TWICE A DAY BY MOUTH
     Route: 048
     Dates: start: 20090101, end: 20090301
  2. LANSOPRAZOLE [Suspect]
     Indication: GASTROOESOPHAGEAL REFLUX DISEASE
     Dosage: 30 MG 1 CAP TWICE A DAY BY MOUTH
     Route: 048
     Dates: start: 20090101, end: 20090301

REACTIONS (3)
  - ABDOMINAL PAIN UPPER [None]
  - COUGH [None]
  - TREATMENT FAILURE [None]
